FAERS Safety Report 23942704 (Version 1)
Quarter: 2024Q2

REPORT INFORMATION
  Report Type: Spontaneous
  Country: US (occurrence: None)
  Receive Date: 20240605
  Receipt Date: 20240605
  Transmission Date: 20240716
  Serious: Yes (Hospitalization)
  Sender: FDA-Public Use
  Company Number: None

PATIENT
  Age: 35 Year
  Sex: Female
  Weight: 102.4 kg

DRUGS (20)
  1. CYCLOPHOSPHAMIDE [Suspect]
     Active Substance: CYCLOPHOSPHAMIDE
     Dates: end: 20240524
  2. DOXORUBICIN HYDROCHLORIDE [Suspect]
     Active Substance: DOXORUBICIN HYDROCHLORIDE
     Dates: end: 20240522
  3. ETOPOSIDE [Suspect]
     Active Substance: ETOPOSIDE
     Dates: end: 20240522
  4. PREDNISONE [Suspect]
     Active Substance: PREDNISONE
     Dates: end: 20240524
  5. RITUXIMAB [Suspect]
     Active Substance: RITUXIMAB
     Dates: end: 20240520
  6. VINCRISTINE SULFATE [Suspect]
     Active Substance: VINCRISTINE SULFATE
     Dates: end: 20240522
  7. ACETAMINOPHEN [Concomitant]
     Active Substance: ACETAMINOPHEN
  8. BIOTENE DRY MOUTH ORAL SOLUTION [Concomitant]
  9. DIPHENHYDRAMINE/LIDOCAINE/SODIUM BICARBONATE ORAL SUSPENSION [Concomitant]
  10. ENOXAPARIN SODIUM [Concomitant]
     Active Substance: ENOXAPARIN SODIUM
  11. GUAIFENESIN [Concomitant]
     Active Substance: GUAIFENESIN
  12. HEPARIN [Concomitant]
     Active Substance: HEPARIN SODIUM
  13. IOHEXOL [Concomitant]
     Active Substance: IOHEXOL
  14. KETOROLAC [Concomitant]
     Active Substance: KETOROLAC TROMETHAMINE
  15. LACTATED RINGER^S BOLUS [Concomitant]
  16. PIPERACILLIN AND TAZOBACTAM [Concomitant]
     Active Substance: PIPERACILLIN SODIUM\TAZOBACTAM SODIUM
  17. SODIUM CHLORIDE [Concomitant]
     Active Substance: SODIUM CHLORIDE
  18. SULFAMETHOXAZOLE\TRIMETHOPRIM [Concomitant]
     Active Substance: SULFAMETHOXAZOLE\TRIMETHOPRIM
  19. VALACYCLOVIR [Concomitant]
     Active Substance: VALACYCLOVIR HYDROCHLORIDE
  20. VANCOMYCIN [Concomitant]
     Active Substance: VANCOMYCIN

REACTIONS (4)
  - Chills [None]
  - Neck pain [None]
  - Complication associated with device [None]
  - Jugular vein thrombosis [None]

NARRATIVE: CASE EVENT DATE: 20240531
